FAERS Safety Report 14509300 (Version 2)
Quarter: 2018Q1

REPORT INFORMATION
  Report Type: Report from Study
  Country: JP (occurrence: JP)
  Receive Date: 20180209
  Receipt Date: 20180222
  Transmission Date: 20180509
  Serious: Yes (Hospitalization)
  Sender: FDA-Public Use
  Company Number: JP-EISAI MEDICAL RESEARCH-EC-2018-035903

PATIENT
  Age: 42 Year
  Sex: Female
  Weight: 64 kg

DRUGS (8)
  1. BELSOMRA [Concomitant]
     Active Substance: SUVOREXANT
  2. FYCOMPA [Suspect]
     Active Substance: PERAMPANEL
     Indication: PARTIAL SEIZURES
     Route: 048
     Dates: start: 20170831, end: 20171016
  3. RISPERDAL [Concomitant]
     Active Substance: RISPERIDONE
  4. TEGRETOL [Concomitant]
     Active Substance: CARBAMAZEPINE
  5. DAIOKANZOTO [Concomitant]
     Active Substance: LICORICE ROOT EXTRACT\RHUBARB
  6. E KEPPRA [Concomitant]
     Active Substance: LEVETIRACETAM
  7. PHENOBAL [Concomitant]
     Active Substance: PHENOBARBITAL
  8. LASIX [Concomitant]
     Active Substance: FUROSEMIDE

REACTIONS (1)
  - Pyrexia [Not Recovered/Not Resolved]

NARRATIVE: CASE EVENT DATE: 20170908
